FAERS Safety Report 9108178 (Version 2)
Quarter: 2013Q1

REPORT INFORMATION
  Report Type: Spontaneous
  Country: SI (occurrence: SI)
  Receive Date: 20130221
  Receipt Date: 20130306
  Transmission Date: 20140127
  Serious: Yes (Hospitalization)
  Sender: FDA-Public Use
  Company Number: SI-SANOFI-AVENTIS-2013SA015575

PATIENT
  Age: 72 Year
  Sex: Male

DRUGS (8)
  1. CHLOROQUINE (SALT NOT SPECIFIED) [Suspect]
     Indication: RHEUMATOID ARTHRITIS
     Route: 065
  2. CHLOROQUINE (SALT NOT SPECIFIED) [Suspect]
     Indication: RHEUMATOID ARTHRITIS
     Route: 065
  3. ETORICOXIB [Concomitant]
  4. GLIQUIDONE [Concomitant]
  5. CANDESARTAN [Concomitant]
  6. DILTIAZEM [Concomitant]
  7. RISPERIDONE [Concomitant]
  8. RISPERIDONE [Concomitant]

REACTIONS (9)
  - Mania [Recovering/Resolving]
  - Anxiety [Recovering/Resolving]
  - Delusion of grandeur [Recovering/Resolving]
  - Flight of ideas [Recovering/Resolving]
  - Distractibility [Recovering/Resolving]
  - Irritability [Recovering/Resolving]
  - Logorrhoea [Recovering/Resolving]
  - Energy increased [Recovering/Resolving]
  - Attention deficit/hyperactivity disorder [Recovering/Resolving]
